FAERS Safety Report 10790484 (Version 3)
Quarter: 2015Q2

REPORT INFORMATION
  Report Type: Spontaneous
  Country: US (occurrence: US)
  Receive Date: 20150212
  Receipt Date: 20150622
  Transmission Date: 20150821
  Serious: Yes (Hospitalization, Other)
  Sender: FDA-Public Use
  Company Number: US-PFIZER INC-2015045331

PATIENT
  Age: 66 Year
  Sex: Female
  Weight: 64 kg

DRUGS (10)
  1. NEORAL [Concomitant]
     Active Substance: CYCLOSPORINE
     Dosage: 25 MG, DAILY
  2. RAPAMUNE [Suspect]
     Active Substance: SIROLIMUS
     Indication: RENAL TRANSPLANT
     Dosage: 1 MG, 1X/DAY
  3. NEORAL [Concomitant]
     Active Substance: CYCLOSPORINE
     Dosage: 100 MG, DAILY
  4. FOLBEE PLUS [Concomitant]
     Dosage: 1 DF, DAILY
  5. COZAAR [Concomitant]
     Active Substance: LOSARTAN POTASSIUM
     Dosage: 50 MG, 1X/DAY
  6. PROCRIT [Concomitant]
     Active Substance: ERYTHROPOIETIN
     Indication: ANAEMIA
     Dosage: UNK, OCCASIONALLY WHEN NEEDED
  7. ZEMPLAR [Concomitant]
     Active Substance: PARICALCITOL
     Dosage: 1 MCG, 1X/DAY
  8. SORIATANE [Concomitant]
     Active Substance: ACITRETIN
     Dosage: 25 MG, 1X/DAY
  9. NEORAL [Concomitant]
     Active Substance: CYCLOSPORINE
     Dosage: 150 MG, DAILY
  10. PREDNISONE. [Concomitant]
     Active Substance: PREDNISONE
     Dosage: 7.5 MG, ALTERNATE DAY

REACTIONS (1)
  - Scoliosis [Not Recovered/Not Resolved]
